FAERS Safety Report 4685298-7 (Version None)
Quarter: 2005Q2

REPORT INFORMATION
  Report Type: 
  Country: None (occurrence: None)
  Receive Date: 20050608
  Receipt Date: 20041104
  Transmission Date: 20051028
  Serious: Yes (Hospitalization, Other)
  Sender: FDA-Public Use
  Company Number: PHBS2004JP14920

PATIENT
  Age: 10 Year
  Sex: Female
  Weight: 33 kg

DRUGS (7)
  1. LOXOPROFEN SODIUM [Suspect]
     Indication: JUVENILE ARTHRITIS
     Dates: end: 20031101
  2. METHYLPREDNISOLONE [Suspect]
     Indication: HISTIOCYTOSIS HAEMATOPHAGIC
     Dosage: PULSE THERAPY
     Dates: start: 20031209
  3. METHOTREXATE [Concomitant]
     Indication: JUVENILE ARTHRITIS
     Dates: start: 19991201
  4. IOHEXOL [Suspect]
     Indication: COMPUTERISED TOMOGRAM ABDOMEN
     Dosage: 50 ML, UNK
     Route: 065
     Dates: start: 20031216
  5. STEROIDS NOS [Concomitant]
     Dosage: PULSE THERAPY
  6. CYCLOSPORINE [Suspect]
     Indication: JUVENILE ARTHRITIS
     Dosage: 5 MG/KG/DAY
     Route: 048
     Dates: start: 20010101, end: 20031125
  7. SANDIMMUNE [Suspect]
     Indication: JUVENILE ARTHRITIS
     Dosage: 1.5 MG/KG/DAY
     Dates: start: 20031126

REACTIONS (44)
  - ANAEMIA [None]
  - BACTERIAL TOXAEMIA [None]
  - BETA 2 MICROGLOBULIN INCREASED [None]
  - BETA-N-ACETYL-D-GLUCOSAMINIDASE INCREASED [None]
  - BLOOD AMYLASE INCREASED [None]
  - BLOOD CALCIUM INCREASED [None]
  - BLOOD CREATININE INCREASED [None]
  - BLOOD FIBRINOGEN DECREASED [None]
  - BLOOD LACTATE DEHYDROGENASE INCREASED [None]
  - BLOOD PRESSURE DIASTOLIC DECREASED [None]
  - BLOOD UREA INCREASED [None]
  - BODY TEMPERATURE INCREASED [None]
  - C-REACTIVE PROTEIN INCREASED [None]
  - COAGULOPATHY [None]
  - CONJUNCTIVAL HYPERAEMIA [None]
  - CONTRAST MEDIA REACTION [None]
  - DEPRESSED LEVEL OF CONSCIOUSNESS [None]
  - DISEASE PROGRESSION [None]
  - DISSEMINATED INTRAVASCULAR COAGULATION [None]
  - ECCHYMOSIS [None]
  - HAEMATOTOXICITY [None]
  - HAEMODIALYSIS [None]
  - HAEMORRHAGE SUBCUTANEOUS [None]
  - HEART RATE INCREASED [None]
  - HEPATIC FUNCTION ABNORMAL [None]
  - HEPATOSPLENOMEGALY [None]
  - HISTIOCYTOSIS HAEMATOPHAGIC [None]
  - HYPOALBUMINAEMIA [None]
  - HYPOPROTEINAEMIA [None]
  - HYPOTENSION [None]
  - JUVENILE ARTHRITIS [None]
  - MUCOSAL HAEMORRHAGE [None]
  - NEPHROPATHY TOXIC [None]
  - OEDEMA PERIPHERAL [None]
  - PANCYTOPENIA [None]
  - PLATELET COUNT DECREASED [None]
  - PYREXIA [None]
  - RENAL FAILURE ACUTE [None]
  - RENAL IMPAIRMENT [None]
  - RENAL TUBULAR DISORDER [None]
  - SEPSIS [None]
  - SERUM FERRITIN INCREASED [None]
  - TUBULOINTERSTITIAL NEPHRITIS [None]
  - URAEMIC ENCEPHALOPATHY [None]
